FAERS Safety Report 16926743 (Version 1)
Quarter: 2019Q4

REPORT INFORMATION
  Report Type: Spontaneous
  Country: US (occurrence: US)
  Receive Date: 20191016
  Receipt Date: 20191016
  Transmission Date: 20200122
  Serious: No
  Sender: FDA-Public Use
  Company Number: US-SA-2019SA285055

PATIENT
  Age: 56 Year

DRUGS (3)
  1. PRALUENT [Suspect]
     Active Substance: ALIROCUMAB
     Dosage: 75 MG
  2. PRALUENT [Suspect]
     Active Substance: ALIROCUMAB
     Dosage: 150 MG
  3. PRALUENT [Suspect]
     Active Substance: ALIROCUMAB
     Dosage: 75 UNK

REACTIONS (3)
  - Injection site warmth [Unknown]
  - Diarrhoea [Unknown]
  - Injection site rash [Unknown]
